FAERS Safety Report 8242464-1 (Version None)
Quarter: 2012Q1

REPORT INFORMATION
  Report Type: 
  Country: None (occurrence: None)
  Receive Date: 20120314
  Receipt Date: 20110726
  Transmission Date: 20120608
  Serious: Yes (Other)
  Sender: FDA-Public Use
  Company Number: PHHY2011US70088

PATIENT
  Age: 38 Year
  Sex: Male
  Weight: 99.8 kg

DRUGS (1)
  1. FANAPT [Suspect]
     Indication: SCHIZOPHRENIA
     Dosage: 6 MG, BID, ORAL
     Route: 048

REACTIONS (1)
  - WEIGHT INCREASED [None]
